FAERS Safety Report 14327273 (Version 2)
Quarter: 2018Q1

REPORT INFORMATION
  Report Type: Report from Study
  Country: US (occurrence: US)
  Receive Date: 20171227
  Receipt Date: 20180109
  Transmission Date: 20180509
  Serious: No
  Sender: FDA-Public Use
  Company Number: US-EMD SERONO-7315345

PATIENT
  Age: 62 Year
  Sex: Female
  Weight: 71 kg

DRUGS (6)
  1. BIOTENE                            /06680101/ [Concomitant]
     Indication: DRY MOUTH
     Dosage: 1 TAB
     Dates: start: 20140820
  2. AVELUMAB [Suspect]
     Active Substance: AVELUMAB
     Indication: BREAST CANCER METASTATIC
     Dates: start: 20140723, end: 20140723
  3. TESSALON [Concomitant]
     Active Substance: BENZONATATE
     Indication: COUGH
     Dates: start: 20140803
  4. AVELUMAB [Suspect]
     Active Substance: AVELUMAB
     Indication: OVARIAN CANCER
     Dates: end: 20140820
  5. PRILOSEC [Concomitant]
     Active Substance: OMEPRAZOLE MAGNESIUM
     Indication: GASTROOESOPHAGEAL REFLUX DISEASE
  6. EMLA [Concomitant]
     Active Substance: LIDOCAINE\PRILOCAINE
     Indication: PRODUCT USED FOR UNKNOWN INDICATION

REACTIONS (3)
  - Arthralgia [Recovered/Resolved]
  - Blood creatine phosphokinase increased [Not Recovered/Not Resolved]
  - Rheumatoid arthritis [Not Recovered/Not Resolved]

NARRATIVE: CASE EVENT DATE: 20140725
